FAERS Safety Report 14431108 (Version 3)
Quarter: 2018Q1

REPORT INFORMATION
  Report Type: Report from Study
  Country: IT (occurrence: IT)
  Receive Date: 20180124
  Receipt Date: 20180228
  Transmission Date: 20180509
  Serious: Yes (Hospitalization)
  Sender: FDA-Public Use
  Company Number: IT-ROCHE-2053863

PATIENT
  Age: 67 Year
  Sex: Male
  Weight: 90 kg

DRUGS (17)
  1. LOBIVON [Concomitant]
     Active Substance: NEBIVOLOL HYDROCHLORIDE
     Indication: ATRIAL FIBRILLATION
     Route: 048
  2. ZANTIPRIDE [Concomitant]
     Active Substance: ZOFENOPRIL
     Indication: ATRIAL FIBRILLATION
     Route: 048
  3. LORAZEPAM. [Concomitant]
     Active Substance: LORAZEPAM
     Indication: ANXIETY
     Route: 065
     Dates: start: 20170825
  4. ELIQUIS [Concomitant]
     Active Substance: APIXABAN
     Indication: ATRIAL FIBRILLATION
     Route: 065
     Dates: start: 20180213
  5. VEMURAFENIB. [Suspect]
     Active Substance: VEMURAFENIB
     Indication: MALIGNANT MELANOMA
     Dosage: DATE OF MOST RECENT DOSE OF VEMURAFENIB (3) PRIOR TO AE/SAE ONSET : 08/JAN/2018?(FOUR TABLETS) ON DA
     Route: 048
     Dates: start: 20170804
  6. ALMARYTM [Concomitant]
     Active Substance: FLECAINIDE ACETATE
     Indication: ATRIAL FIBRILLATION
     Route: 048
  7. TOPSTER [Concomitant]
     Indication: RECTAL PROLAPSE
     Route: 065
     Dates: start: 20180130
  8. COUMADIN [Concomitant]
     Active Substance: WARFARIN SODIUM
     Indication: ATRIAL FIBRILLATION
     Route: 048
     Dates: end: 20180213
  9. BLINDED ATEZOLIZUMAB [Suspect]
     Active Substance: ATEZOLIZUMAB
     Indication: MALIGNANT MELANOMA
     Dosage: DATE OF MOST RECENT DOSE OF BLINDED ATEZOLIZUMAB PRIOR TO AE/SAE ONSET : 27/DEC/2017
     Route: 042
     Dates: start: 20170901
  10. PANTOPRAZOLE [Concomitant]
     Active Substance: PANTOPRAZOLE
     Indication: ABDOMINAL PAIN UPPER
     Route: 065
     Dates: start: 20170915
  11. RIOPAN (ITALY) [Concomitant]
     Indication: ABDOMINAL PAIN UPPER
     Route: 065
     Dates: start: 20170915
  12. VESSEL (ITALY) [Concomitant]
     Indication: RECTAL PROLAPSE
     Route: 065
     Dates: start: 20180130
  13. ADALAT CRONO [Concomitant]
     Active Substance: NIFEDIPINE
     Indication: HYPERTENSION
     Route: 048
     Dates: start: 20170906
  14. COBIMETINIB. [Suspect]
     Active Substance: COBIMETINIB
     Indication: MALIGNANT MELANOMA
     Dosage: DATE OF MOST RECENT DOSE OF COBIMETINIB (40 MG) PRIOR TO AE/SAE ONSET :10/OCT2017?(THREE, 20 MG TABL
     Route: 048
     Dates: start: 20170804
  15. ATORVASTATINE [Concomitant]
     Active Substance: ATORVASTATIN
     Indication: ATRIAL FIBRILLATION
     Route: 048
  16. DIAZEPAM. [Concomitant]
     Active Substance: DIAZEPAM
     Indication: ANXIETY
     Route: 065
     Dates: start: 20170825
  17. MUCOCIS [Concomitant]
     Indication: DYSPHONIA
     Route: 065
     Dates: start: 201711

REACTIONS (1)
  - Vocal cord leukoplakia [Recovered/Resolved]

NARRATIVE: CASE EVENT DATE: 20180108
